FAERS Safety Report 6524026-7 (Version None)
Quarter: 2009Q4

REPORT INFORMATION
  Report Type: 
  Country: None (occurrence: None)
  Receive Date: 20091230
  Receipt Date: 20091230
  Transmission Date: 20100525
  Serious: Yes (Hospitalization)
  Sender: FDA-Public Use
  Company Number: None

PATIENT
  Sex: Male
  Weight: 77.68 kg

DRUGS (4)
  1. TAXOTERE [Suspect]
     Dosage: 150 MG
  2. TAXOTERE [Suspect]
     Dosage: 150 MG
  3. OXYCOTIN 20 MG TWICE DAILY [Concomitant]
  4. OXYCODONE HCL [Concomitant]

REACTIONS (4)
  - CONSTIPATION [None]
  - FAECALOMA [None]
  - GASTROINTESTINAL MUCOSAL DISORDER [None]
  - ILEUS [None]
